FAERS Safety Report 20750581 (Version 1)
Quarter: 2022Q2

REPORT INFORMATION
  Report Type: Spontaneous
  Country: US (occurrence: US)
  Receive Date: 20220426
  Receipt Date: 20220426
  Transmission Date: 20220720
  Serious: No
  Sender: FDA-Public Use
  Company Number: US-ARBOR PHARMACEUTICALS, LLC-US-2021ARB001293

PATIENT
  Age: 77 Year
  Sex: Female
  Weight: 103.4 kg

DRUGS (1)
  1. ERYTHROMYCIN [Suspect]
     Active Substance: ERYTHROMYCIN
     Indication: Cataract operation
     Dosage: 2 TIMES DAILY (RIGHT EYE)
     Route: 061
     Dates: start: 2012

REACTIONS (4)
  - Rash [Not Recovered/Not Resolved]
  - Eyelid rash [Unknown]
  - Drug hypersensitivity [Not Recovered/Not Resolved]
  - Urticaria [Not Recovered/Not Resolved]

NARRATIVE: CASE EVENT DATE: 20121010
